FAERS Safety Report 4571167-X (Version None)
Quarter: 2005Q1

REPORT INFORMATION
  Report Type: 
  Country: None (occurrence: None)
  Receive Date: 20050202
  Receipt Date: 20050104
  Transmission Date: 20050727
  Serious: Yes (Death, Hospitalization)
  Sender: FDA-Public Use
  Company Number: EWC050142318

PATIENT
  Age: 66 Year
  Sex: Male

DRUGS (2)
  1. PERGOLIDE MESYLATE [Suspect]
     Indication: PARKINSON'S DISEASE
     Dosage: 1 MG/3 DAY
     Dates: start: 20021121
  2. PLURIMEN (SELEGILINE HYDROCHLORIDE) [Concomitant]

REACTIONS (1)
  - PULMONARY FIBROSIS [None]
